FAERS Safety Report 23534690 (Version 1)
Quarter: 2024Q1

REPORT INFORMATION
  Report Type: Spontaneous
  Country: ES (occurrence: ES)
  Receive Date: 20240217
  Receipt Date: 20240217
  Transmission Date: 20240410
  Serious: Yes (Hospitalization)
  Sender: FDA-Public Use
  Company Number: ES-AEMPS-1483407

PATIENT
  Age: 57 Year
  Sex: Male

DRUGS (5)
  1. HYDROCHLOROTHIAZIDE [Suspect]
     Active Substance: HYDROCHLOROTHIAZIDE
     Indication: Hypertension
     Dosage: 12.5 MILLIGRAM, TWO TIMES A DAY
     Route: 048
     Dates: start: 20230321, end: 20230912
  2. BRINTELLIX [Concomitant]
     Active Substance: VORTIOXETINE HYDROBROMIDE
     Indication: Persistent depressive disorder
     Dosage: 15 MILLIGRAM, DAILY
     Route: 048
     Dates: start: 20230801
  3. CAPTOR [Concomitant]
     Indication: Back pain
     Dosage: UNK (1.0 COMP DECOCE)
     Route: 048
     Dates: start: 20230328
  4. OMEPRAZOLE MAGNESIUM [Concomitant]
     Active Substance: OMEPRAZOLE MAGNESIUM
     Indication: Sciatica
     Dosage: 20 MILLIGRAM, DAILY
     Route: 048
     Dates: start: 20160116
  5. LYRICA [Concomitant]
     Active Substance: PREGABALIN
     Indication: Peripheral nerve lesion
     Dosage: 75 MILLIGRAM, TWO TIMES A DAY
     Route: 048
     Dates: start: 20230320

REACTIONS (1)
  - Hyponatraemia [Recovered/Resolved]

NARRATIVE: CASE EVENT DATE: 20230912
